FAERS Safety Report 24379466 (Version 1)
Quarter: 2024Q3

REPORT INFORMATION
  Report Type: Spontaneous
  Country: CA (occurrence: CA)
  Receive Date: 20240930
  Receipt Date: 20240930
  Transmission Date: 20241016
  Serious: Yes (Other)
  Sender: TEVA
  Company Number: CA-TEVA-VS-3247093

PATIENT

DRUGS (1)
  1. OXALIPLATIN [Suspect]
     Active Substance: OXALIPLATIN
     Indication: Chemotherapy
     Route: 065

REACTIONS (5)
  - Speech disorder [Unknown]
  - Lip swelling [Unknown]
  - Tongue disorder [Unknown]
  - Neuropathy peripheral [Unknown]
  - Hypertension [Unknown]
